FAERS Safety Report 16325686 (Version 1)
Quarter: 2019Q2

REPORT INFORMATION
  Report Type: Spontaneous
  Country: US (occurrence: US)
  Receive Date: 20190411
  Receipt Date: 20190411
  Transmission Date: 20190711
  Serious: Yes (Hospitalization)
  Sender: FDA-Public Use
  Company Number: None

PATIENT
  Age: 65 Year
  Sex: Male

DRUGS (1)
  1. ADALIMUMAB [Suspect]
     Active Substance: ADALIMUMAB
     Indication: COLITIS ULCERATIVE
     Dosage: ?          OTHER FREQUENCY:UD;?
     Route: 058
     Dates: start: 20190201, end: 20190222

REACTIONS (3)
  - Lyme disease [None]
  - Herpes simplex encephalitis [None]
  - Prophylaxis [None]

NARRATIVE: CASE EVENT DATE: 20190204
